FAERS Safety Report 23752357 (Version 3)
Quarter: 2024Q2

REPORT INFORMATION
  Report Type: Spontaneous
  Country: CA (occurrence: CA)
  Receive Date: 20240417
  Receipt Date: 20240508
  Transmission Date: 20240715
  Serious: Yes (Other)
  Sender: FDA-Public Use
  Company Number: CA-AMERICAN REGENT INC-2024001323

PATIENT
  Age: 28 Year
  Sex: Female

DRUGS (1)
  1. VENOFER [Suspect]
     Active Substance: IRON SUCROSE
     Indication: Iron deficiency anaemia
     Dosage: 300 MILLIGRAM IN 250 ML NS AT 100 ML/HR
     Dates: start: 20231209, end: 20231209

REACTIONS (7)
  - Oropharyngeal pain [Unknown]
  - Paraesthesia [Unknown]
  - Back pain [Unknown]
  - Chest discomfort [Unknown]
  - Dyspnoea [Unknown]
  - Hypotension [Recovering/Resolving]
  - Incorrect product administration duration [Unknown]

NARRATIVE: CASE EVENT DATE: 20231209
